FAERS Safety Report 15702433 (Version 1)
Quarter: 2018Q4

REPORT INFORMATION
  Report Type: Report from Study
  Country: None (occurrence: IT)
  Receive Date: 20181210
  Receipt Date: 20181210
  Transmission Date: 20190205
  Serious: Yes (Death, Hospitalization, Other)
  Sender: FDA-Public Use
  Company Number: IT-ABBVIE-18S-083-2562921-00

PATIENT
  Age: 70 Year
  Sex: Male

DRUGS (1)
  1. DUODOPA [Suspect]
     Active Substance: CARBIDOPA\LEVODOPA
     Indication: PARKINSON^S DISEASE
     Dosage: MD 8(+3) CR 3.9 ED 2.5
     Route: 050
     Dates: start: 20140701

REACTIONS (6)
  - Duodenal ulcer [Unknown]
  - Nausea [Unknown]
  - Nausea [Recovered/Resolved]
  - Device dislocation [Unknown]
  - Bezoar [Unknown]
  - Death [Fatal]

NARRATIVE: CASE EVENT DATE: 20140701
